FAERS Safety Report 4917287-9 (Version None)
Quarter: 2006Q1

REPORT INFORMATION
  Report Type: 
  Country: None (occurrence: None)
  Receive Date: 20060221
  Receipt Date: 20060215
  Transmission Date: 20060701
  Serious: Yes (Hospitalization)
  Sender: FDA-Public Use
  Company Number: FR-AVENTIS-200610616FR

PATIENT
  Age: 38 Year
  Sex: Female

DRUGS (5)
  1. FLAGYL [Suspect]
     Route: 048
     Dates: start: 20060109, end: 20060114
  2. ACUPAN [Concomitant]
     Route: 048
     Dates: start: 20060111, end: 20060115
  3. CIFLOX [Concomitant]
     Route: 048
     Dates: start: 20060112, end: 20060114
  4. ACETAMINOPHEN [Concomitant]
     Route: 048
     Dates: start: 20060109, end: 20060111
  5. SMECTA [Concomitant]
     Route: 048
     Dates: end: 20060115

REACTIONS (3)
  - ANAEMIA [None]
  - EOSINOPHILIA [None]
  - THROMBOCYTOPENIA [None]
